FAERS Safety Report 5195006-1 (Version None)
Quarter: 2006Q4

REPORT INFORMATION
  Report Type: 
  Country: None (occurrence: None)
  Receive Date: 20061229
  Receipt Date: 20060927
  Transmission Date: 20070319
  Serious: Yes (Disabling)
  Sender: FDA-Public Use
  Company Number: JP-MERCK-0610USA06636

PATIENT
  Age: 25 Year
  Sex: Male

DRUGS (3)
  1. PROPECIA [Suspect]
     Indication: MALE PATTERN BALDNESS
     Route: 048
     Dates: start: 20060601, end: 20060923
  2. PROPECIA [Suspect]
     Route: 048
     Dates: start: 20060406, end: 20060531
  3. PROPECIA [Suspect]
     Route: 048
     Dates: start: 20060101

REACTIONS (1)
  - BLOOD BILIRUBIN INCREASED [None]
